FAERS Safety Report 5622171-1 (Version None)
Quarter: 2008Q1

REPORT INFORMATION
  Report Type: 
  Country: None (occurrence: None)
  Receive Date: 20080211
  Receipt Date: 20080207
  Transmission Date: 20080703
  Serious: Yes (Hospitalization)
  Sender: FDA-Public Use
  Company Number: DK-ASTRAZENECA-2007SE04220

PATIENT
  Age: 26434 Day
  Sex: Female

DRUGS (8)
  1. SELO-ZOK [Suspect]
     Indication: ATRIAL FIBRILLATION
     Route: 048
  2. SELO-ZOK [Suspect]
     Route: 048
  3. AZD0837 [Suspect]
     Indication: THROMBOSIS PROPHYLAXIS
     Route: 048
     Dates: start: 20070601
  4. DIGOXIN [Concomitant]
     Indication: ATRIAL FIBRILLATION
     Route: 048
  5. FURIX [Concomitant]
     Indication: CARDIAC FAILURE CONGESTIVE
     Route: 048
  6. POTASSIUM CHLORIDE [Concomitant]
     Indication: MEDICAL DIET
     Route: 048
  7. PREDNISOLONE [Concomitant]
     Indication: RHEUMATOID ARTHRITIS
     Route: 048
  8. UNIKALK [Concomitant]
     Indication: MEDICAL DIET
     Route: 048

REACTIONS (2)
  - ORTHOSTATIC HYPOTENSION [None]
  - TIBIA FRACTURE [None]
